FAERS Safety Report 8297205-9 (Version None)
Quarter: 2012Q2

REPORT INFORMATION
  Report Type: 
  Country: None (occurrence: None)
  Receive Date: 20120419
  Receipt Date: 20120412
  Transmission Date: 20120825
  Serious: Yes (Hospitalization, Other)
  Sender: FDA-Public Use
  Company Number: US-BAYER-2011-072637

PATIENT
  Age: 36 Year
  Sex: Female
  Weight: 77.098 kg

DRUGS (4)
  1. KEFLEX [Concomitant]
     Indication: THROMBOSIS
  2. YAZ [Suspect]
     Indication: CONTRACEPTION
     Dosage: UNK
     Dates: start: 20080401, end: 20080901
  3. MAXZIDE [Concomitant]
     Indication: OEDEMA PERIPHERAL
     Dosage: UNK UNK, QD
     Route: 048
     Dates: start: 20080829, end: 20080902
  4. KEFLEX [Concomitant]
     Indication: PAIN IN EXTREMITY
     Dosage: 500 MG, QID
     Route: 048
     Dates: start: 20080829, end: 20080902

REACTIONS (11)
  - EMOTIONAL DISTRESS [None]
  - INJURY [None]
  - DEEP VEIN THROMBOSIS [None]
  - DYSPNOEA [None]
  - ANXIETY [None]
  - POOR PERIPHERAL CIRCULATION [None]
  - PULMONARY FIBROSIS [None]
  - PAIN IN EXTREMITY [None]
  - ARTHRALGIA [None]
  - PULMONARY EMBOLISM [None]
  - DIZZINESS [None]
